FAERS Safety Report 5330678-X (Version None)
Quarter: 2007Q2

REPORT INFORMATION
  Report Type: 
  Country: None (occurrence: None)
  Receive Date: 20070522
  Receipt Date: 20070517
  Transmission Date: 20071010
  Serious: Yes (Life-Threatening, Hospitalization, Other)
  Sender: FDA-Public Use
  Company Number: PHNR2007AU01061

PATIENT
  Age: 42 Year
  Sex: Male

DRUGS (4)
  1. CLOZARIL [Suspect]
     Indication: SCHIZOPHRENIA
     Dosage: 0 - 700 MG DAILY
     Route: 048
     Dates: start: 20000516, end: 20070402
  2. LITHIUM CARBONATE [Concomitant]
     Dosage: 250MG MANE, 750MG NOCTE
  3. METFORMIN HCL [Concomitant]
     Dosage: 1000MG MANE, 500MG NOCTE
  4. SIMVASTATIN [Concomitant]
     Dosage: 40 MG, QD, NOCTE

REACTIONS (24)
  - BLOOD GASES ABNORMAL [None]
  - BLOOD GLUCOSE DECREASED [None]
  - BLOOD KETONE BODY [None]
  - BLOOD PH DECREASED [None]
  - C-REACTIVE PROTEIN INCREASED [None]
  - CHEST X-RAY ABNORMAL [None]
  - COUGH [None]
  - DEPRESSED LEVEL OF CONSCIOUSNESS [None]
  - DIABETIC COMPLICATION [None]
  - GLASGOW COMA SCALE ABNORMAL [None]
  - HYPOTENSION [None]
  - INFLUENZA LIKE ILLNESS [None]
  - INTUBATION [None]
  - LETHARGY [None]
  - LOWER RESPIRATORY TRACT INFECTION [None]
  - METABOLIC ACIDOSIS [None]
  - NEUTROPHIL COUNT INCREASED [None]
  - NUCLEAR MAGNETIC RESONANCE IMAGING ABNORMAL [None]
  - PNEUMONIA [None]
  - PO2 DECREASED [None]
  - SEPSIS [None]
  - TACHYPNOEA [None]
  - VOMITING [None]
  - WHITE BLOOD CELL COUNT INCREASED [None]
